FAERS Safety Report 9532190 (Version 1)
Quarter: 2013Q3

REPORT INFORMATION
  Report Type: Spontaneous
  Country: CA (occurrence: CA)
  Receive Date: 20130918
  Receipt Date: 20130918
  Transmission Date: 20140515
  Serious: Yes (Other)
  Sender: FDA-Public Use
  Company Number: CA-ASTRAZENECA-2013SE68718

PATIENT
  Sex: Female

DRUGS (8)
  1. FASLODEX [Suspect]
     Route: 030
  2. TAMOXIFEN [Suspect]
     Route: 048
  3. XELODA [Suspect]
     Route: 065
  4. CAELYX [Suspect]
     Dosage: SINGLE USE VIALS 20MG/10ML AND 50MG/25ML PEG
     Route: 065
  5. FEMARA [Suspect]
     Route: 048
  6. MEGACE OS [Suspect]
     Route: 048
  7. PACLITAXEL INJECTION USP 6 MG/ML (PACLITAXEL (SEMISYNTHETIC) USP) (PACLITAXEL (SEMISYNTHETIC) USP) [Suspect]
     Route: 042
  8. VINORELBINE TARTRATE [Suspect]
     Route: 042

REACTIONS (2)
  - Breast cancer female [Unknown]
  - Neoplasm progression [Unknown]
